FAERS Safety Report 14625757 (Version 2)
Quarter: 2018Q1

REPORT INFORMATION
  Report Type: Spontaneous
  Country: OM (occurrence: OM)
  Receive Date: 20180312
  Receipt Date: 20180319
  Transmission Date: 20180509
  Serious: Yes (Other)
  Sender: FDA-Public Use
  Company Number: OM-PFIZER INC-2018095483

PATIENT
  Age: 27 Year
  Sex: Male

DRUGS (7)
  1. OXALIPLATIN. [Suspect]
     Active Substance: OXALIPLATIN
     Indication: EXTRAGONADAL PRIMARY NON-SEMINOMA
     Dosage: UNK (3RD LINE CHEMOTHERAPY)
     Dates: start: 2010
  2. BLEOMYCIN [Suspect]
     Active Substance: BLEOMYCIN SULFATE
     Indication: EXTRAGONADAL PRIMARY NON-SEMINOMA
     Dosage: UNK, CYCLIC (4 CYCLES)
  3. PACLITAXEL. [Suspect]
     Active Substance: PACLITAXEL
     Indication: EXTRAGONADAL PRIMARY NON-SEMINOMA
     Dosage: UNK, CYCLIC (ADDITIONAL 2 CYCLES OF 3))
  4. CISPLATIN. [Suspect]
     Active Substance: CISPLATIN
     Indication: EXTRAGONADAL PRIMARY NON-SEMINOMA
     Dosage: UNK, CYCLIC (4 CYCLES)
  5. CARBOPLATIN. [Suspect]
     Active Substance: CARBOPLATIN
     Indication: EXTRAGONADAL PRIMARY NON-SEMINOMA
     Dosage: UNK UNK, CYCLIC (2 CYCLES OF 3 WEEKLY)
  6. GEMCITABINE HYDROCHLORIDE. [Suspect]
     Active Substance: GEMCITABINE HYDROCHLORIDE
     Dosage: UNK (3 RD LINE CHEMOTHERAPY)
     Dates: start: 2010
  7. ETOPOSIDE. [Suspect]
     Active Substance: ETOPOSIDE
     Indication: EXTRAGONADAL PRIMARY NON-SEMINOMA
     Dosage: UNK, CYCLIC (4 CYCLES)

REACTIONS (1)
  - Osteonecrosis [Recovered/Resolved]

NARRATIVE: CASE EVENT DATE: 201202
